FAERS Safety Report 10471757 (Version 1)
Quarter: 2014Q3

REPORT INFORMATION
  Report Type: Spontaneous
  Country: US (occurrence: US)
  Receive Date: 20140923
  Receipt Date: 20140923
  Transmission Date: 20150326
  Serious: Yes (Hospitalization, Other)
  Sender: FDA-Public Use
  Company Number: US-AMGEN-USASP2014071957

PATIENT
  Sex: Male

DRUGS (1)
  1. PROLIA [Suspect]
     Active Substance: DENOSUMAB
     Indication: OSTEOPOROSIS
     Dosage: UNK
     Route: 065

REACTIONS (8)
  - Pelvic fracture [Unknown]
  - Fall [Unknown]
  - Influenza like illness [Unknown]
  - Cellulitis [Unknown]
  - Ear pain [Unknown]
  - Blister [Unknown]
  - Upper limb fracture [Unknown]
  - Asthenia [Unknown]
